FAERS Safety Report 20821900 (Version 1)
Quarter: 2022Q2

REPORT INFORMATION
  Report Type: Spontaneous
  Country: IT (occurrence: IT)
  Receive Date: 20220512
  Receipt Date: 20220512
  Transmission Date: 20220721
  Serious: Yes (Other)
  Sender: FDA-Public Use
  Company Number: IT-CLOVIS ONCOLOGY-CLO-2022-000566

PATIENT

DRUGS (2)
  1. RUBRACA [Suspect]
     Active Substance: RUCAPARIB CAMSYLATE
     Indication: Ovarian neoplasm
     Dosage: 800 MILLIGRAM, QD
     Route: 048
     Dates: start: 20211202
  2. RUBRACA [Suspect]
     Active Substance: RUCAPARIB CAMSYLATE
     Dosage: 600 MILLIGRAM, UNK
     Route: 048

REACTIONS (2)
  - Nephropathy toxic [Not Recovered/Not Resolved]
  - Haematotoxicity [Not Recovered/Not Resolved]

NARRATIVE: CASE EVENT DATE: 20220426
